FAERS Safety Report 5370459-4 (Version None)
Quarter: 2007Q2

REPORT INFORMATION
  Report Type: 
  Country: None (occurrence: None)
  Receive Date: 20070626
  Receipt Date: 20070320
  Transmission Date: 20071010
  Serious: Yes (Other)
  Sender: FDA-Public Use
  Company Number: US-AMGEN-US214704

PATIENT
  Sex: Female
  Weight: 69 kg

DRUGS (19)
  1. EPOGEN [Suspect]
     Indication: RENAL FAILURE CHRONIC
     Route: 058
     Dates: start: 20061027
  2. ARANESP [Suspect]
     Indication: RENAL FAILURE CHRONIC
     Route: 065
  3. GLIPIZIDE [Concomitant]
  4. PREVACID [Concomitant]
  5. ALTACE [Concomitant]
  6. ZETIA [Concomitant]
  7. SODIUM BICARBONATE [Concomitant]
  8. ZOCOR [Concomitant]
  9. CLONAZEPAM [Concomitant]
  10. HYZAAR [Concomitant]
  11. CALCITRIOL [Concomitant]
  12. ZONEGRAN [Concomitant]
  13. KLONOPIN [Concomitant]
  14. REQUIP [Concomitant]
  15. LAMICTAL [Concomitant]
  16. XALATAN [Concomitant]
  17. DICYCLOMINE HYDROCHLORIDE [Concomitant]
  18. IRON [Concomitant]
  19. TYLOX [Concomitant]

REACTIONS (1)
  - CONVULSION [None]
